FAERS Safety Report 5831770-3 (Version None)
Quarter: 2008Q3

REPORT INFORMATION
  Report Type: 
  Country: None (occurrence: None)
  Receive Date: 20080803
  Receipt Date: 20080725
  Transmission Date: 20090109
  Serious: Yes (Other)
  Sender: FDA-Public Use
  Company Number: PHBS2008RO05217

PATIENT
  Age: 25 Year
  Sex: Female

DRUGS (2)
  1. BROMOCRIPTINE MESYLATE [Suspect]
     Indication: PROLACTIN-PRODUCING PITUITARY TUMOUR
  2. ANTIPSYCHOTICS [Concomitant]

REACTIONS (2)
  - BLOOD PROLACTIN INCREASED [None]
  - PSYCHOTIC DISORDER [None]
